FAERS Safety Report 6471635-X (Version None)
Quarter: 2009Q4

REPORT INFORMATION
  Report Type: 
  Country: None (occurrence: None)
  Receive Date: 20091203
  Receipt Date: 20080728
  Transmission Date: 20100525
  Serious: Yes (Other)
  Sender: FDA-Public Use
  Company Number: US-ELI_LILLY_AND_COMPANY-US200803005966

PATIENT
  Sex: Female

DRUGS (4)
  1. FORTEO [Suspect]
     Indication: OSTEOPOROSIS
     Dosage: UNK, UNK
     Dates: start: 20070101
  2. FORTEO [Suspect]
  3. CRESTOR [Concomitant]
     Dosage: 5 MG, 2/W
  4. CELEBREX [Concomitant]
     Indication: INFLAMMATION

REACTIONS (9)
  - ARTHRALGIA [None]
  - FEMUR FRACTURE [None]
  - GAIT DISTURBANCE [None]
  - INFLAMMATION [None]
  - MALAISE [None]
  - MUSCLE SPASMS [None]
  - NASOPHARYNGITIS [None]
  - PAIN [None]
  - STRESS FRACTURE [None]
